FAERS Safety Report 6085034-6 (Version None)
Quarter: 2009Q1

REPORT INFORMATION
  Report Type: 
  Country: None (occurrence: None)
  Receive Date: 20090220
  Receipt Date: 20090209
  Transmission Date: 20090719
  Serious: Yes (Hospitalization)
  Sender: FDA-Public Use
  Company Number: NZ-AMGEN-US333549

PATIENT

DRUGS (1)
  1. ENBREL [Suspect]
     Indication: JUVENILE ARTHRITIS

REACTIONS (3)
  - CENTRAL NERVOUS SYSTEM VIRAL INFECTION [None]
  - CONVULSION [None]
  - ENCEPHALITIS [None]
